FAERS Safety Report 23534142 (Version 2)
Quarter: 2024Q1

REPORT INFORMATION
  Report Type: Report from Study
  Country: CA (occurrence: CA)
  Receive Date: 20240216
  Receipt Date: 20240221
  Transmission Date: 20240410
  Serious: Yes (Other)
  Sender: FDA-Public Use
  Company Number: CA-HLS-202400503

PATIENT
  Age: 25 Year
  Sex: Male

DRUGS (2)
  1. CLOZARIL [Suspect]
     Active Substance: CLOZAPINE
     Indication: Schizophrenia
     Dosage: DOSE: 25MG/150MG
     Route: 048
     Dates: start: 20240112, end: 20240212
  2. CLOZARIL [Suspect]
     Active Substance: CLOZAPINE
     Indication: Schizophrenia
     Dosage: CURRENT DOSE: 25MG AM, 162.5MG HS
     Route: 048
     Dates: start: 20240213

REACTIONS (5)
  - C-reactive protein increased [Unknown]
  - Dizziness postural [Unknown]
  - Chest pain [Unknown]
  - Sinus tachycardia [Unknown]
  - Troponin I increased [Unknown]
